FAERS Safety Report 7419118-4 (Version None)
Quarter: 2011Q2

REPORT INFORMATION
  Report Type: 
  Country: None (occurrence: None)
  Receive Date: 20110415
  Receipt Date: 20110321
  Transmission Date: 20111010
  Serious: No
  Sender: FDA-Public Use
  Company Number: US-B.I. PHARMACEUTICALS,INC./RIDGEFIELD-2011-BP-08776BP

PATIENT
  Sex: Female

DRUGS (1)
  1. PRADAXA [Suspect]
     Indication: ATRIAL FIBRILLATION
     Dosage: 150 MG
     Route: 048
     Dates: start: 20110101, end: 20110318

REACTIONS (7)
  - DECREASED APPETITE [None]
  - NAUSEA [None]
  - DIZZINESS [None]
  - HEADACHE [None]
  - ASTHENIA [None]
  - RECTAL HAEMORRHAGE [None]
  - VAGINAL HAEMORRHAGE [None]
